FAERS Safety Report 9479670 (Version 1)
Quarter: 2013Q3

REPORT INFORMATION
  Report Type: Spontaneous
  Country: US (occurrence: US)
  Receive Date: 20130827
  Receipt Date: 20130827
  Transmission Date: 20140515
  Serious: Yes (Other)
  Sender: FDA-Public Use
  Company Number: US-PFIZER INC-2013246122

PATIENT
  Sex: Female

DRUGS (1)
  1. METHYLPREDNISOLONE [Suspect]
     Dosage: UNK

REACTIONS (4)
  - Coeliac disease [Unknown]
  - Oral herpes [Unknown]
  - Feeling abnormal [Unknown]
  - Malaise [Unknown]
